FAERS Safety Report 22637995 (Version 1)
Quarter: 2023Q2

REPORT INFORMATION
  Report Type: Spontaneous
  Country: US (occurrence: US)
  Receive Date: 20230626
  Receipt Date: 20230626
  Transmission Date: 20230722
  Serious: Yes (Other)
  Sender: FDA-Public Use
  Company Number: US-drreddys-LIT/USA/23/0167652

PATIENT
  Age: 65 Year
  Sex: Female

DRUGS (7)
  1. POSACONAZOLE [Suspect]
     Active Substance: POSACONAZOLE
     Indication: Antifungal prophylaxis
  2. POSACONAZOLE [Suspect]
     Active Substance: POSACONAZOLE
     Dosage: ON DAY 6 OF ALLOGENEIC HAEMATOPOIETIC STEM CELL TRANSPLANT
  3. POSACONAZOLE [Suspect]
     Active Substance: POSACONAZOLE
     Dosage: RESUMED ON DAY 8
  4. FLUCONAZOLE [Suspect]
     Active Substance: FLUCONAZOLE
     Indication: Antifungal prophylaxis
  5. KETOCONAZOLE [Suspect]
     Active Substance: KETOCONAZOLE
     Indication: Onychomycosis
  6. METHYLPREDNISOLONE [Suspect]
     Active Substance: METHYLPREDNISOLONE
     Indication: Immunosuppressant drug therapy
     Dosage: TAPERING SCHEDULE
  7. MICAFUNGIN [Concomitant]
     Active Substance: MICAFUNGIN SODIUM
     Indication: Product used for unknown indication

REACTIONS (6)
  - Scedosporium infection [Unknown]
  - Delirium [Unknown]
  - Failure to thrive [Unknown]
  - Paronychia [Unknown]
  - Hypertransaminasaemia [Unknown]
  - Drug ineffective [Unknown]
